FAERS Safety Report 7934186-9 (Version None)
Quarter: 2011Q4

REPORT INFORMATION
  Report Type: 
  Country: None (occurrence: None)
  Receive Date: 20111122
  Receipt Date: 20111114
  Transmission Date: 20120403
  Serious: Yes (Other)
  Sender: FDA-Public Use
  Company Number: PHHY2011CH100334

PATIENT
  Age: 25 Year
  Sex: Female

DRUGS (3)
  1. ALCOHOL [Concomitant]
     Dosage: UNK UKN, UNK
  2. BENZODIAZEPINES [Concomitant]
     Dosage: UNK UKN, UNK
  3. METHYLPHENIDATE [Suspect]
     Dosage: 300-400 MG
     Route: 048

REACTIONS (2)
  - ALCOHOL POISONING [None]
  - TOXICITY TO VARIOUS AGENTS [None]
